FAERS Safety Report 6038519-2 (Version None)
Quarter: 2009Q1

REPORT INFORMATION
  Report Type: 
  Country: None (occurrence: None)
  Receive Date: 20090115
  Receipt Date: 20080201
  Transmission Date: 20090719
  Serious: No
  Sender: FDA-Public Use
  Company Number: US-KINGPHARMUSA00001-K200800166

PATIENT
  Age: 54 Year
  Sex: Female

DRUGS (1)
  1. EPIPEN [Suspect]
     Indication: FOOD ALLERGY
     Dosage: UNK, SINGLE

REACTIONS (1)
  - INJECTION SITE PAIN [None]
